FAERS Safety Report 23848016 (Version 1)
Quarter: 2024Q2

REPORT INFORMATION
  Report Type: Spontaneous
  Country: CO (occurrence: CO)
  Receive Date: 20240513
  Receipt Date: 20240513
  Transmission Date: 20240716
  Serious: Yes (Other)
  Sender: FDA-Public Use
  Company Number: CO-GLAXOSMITHKLINE-CO2024AMR029263

PATIENT

DRUGS (1)
  1. MEPOLIZUMAB [Suspect]
     Active Substance: MEPOLIZUMAB
     Indication: Asthma
     Dosage: 100 MG, MO
     Route: 042
     Dates: start: 20191203, end: 20240506

REACTIONS (8)
  - Abdominal hernia repair [Not Recovered/Not Resolved]
  - Angina pectoris [Not Recovered/Not Resolved]
  - Laboratory test abnormal [Not Recovered/Not Resolved]
  - Illness [Not Recovered/Not Resolved]
  - Cough [Not Recovered/Not Resolved]
  - Abdominal hernia [Not Recovered/Not Resolved]
  - Product use in unapproved indication [Unknown]
  - Drug ineffective for unapproved indication [Unknown]

NARRATIVE: CASE EVENT DATE: 20240301
